FAERS Safety Report 26192066 (Version 1)
Quarter: 2025Q4

REPORT INFORMATION
  Report Type: Spontaneous
  Country: US (occurrence: US)
  Receive Date: 20251223
  Receipt Date: 20251223
  Transmission Date: 20260117
  Serious: Yes (Life-Threatening, Hospitalization, Other)
  Sender: GLENMARK
  Company Number: US-MLMSERVICE-20251204-PI738681-00201-1

PATIENT
  Age: 54 Year
  Sex: Female

DRUGS (2)
  1. LIDOCAINE [Suspect]
     Active Substance: LIDOCAINE
     Indication: Pain in extremity
     Dosage: UNK, FORMULATION: 4 PERCENT PATCH
     Route: 065
  2. PHENAZOPYRIDINE [Suspect]
     Active Substance: PHENAZOPYRIDINE
     Indication: Urinary tract infection
     Dosage: UNK, QD (DAILY PHENAZOPYRIDINE)
     Route: 065

REACTIONS (4)
  - Sulphaemoglobinaemia [Recovering/Resolving]
  - Anaemia [Recovering/Resolving]
  - Encephalopathy [Recovering/Resolving]
  - Methaemoglobinaemia [Recovered/Resolved]
